FAERS Safety Report 22625642 (Version 2)
Quarter: 2023Q2

REPORT INFORMATION
  Report Type: Spontaneous
  Country: US (occurrence: US)
  Receive Date: 20230621
  Receipt Date: 20230627
  Transmission Date: 20230721
  Serious: No
  Sender: FDA-Public Use
  Company Number: US-INCYTE CORPORATION-2023IN006155

PATIENT

DRUGS (2)
  1. JAKAFI [Suspect]
     Active Substance: RUXOLITINIB
     Indication: Polycythaemia vera
     Dosage: 15 MILLIGRAM, BID
     Route: 048
     Dates: start: 20230204
  2. JAKAFI [Suspect]
     Active Substance: RUXOLITINIB
     Dosage: 15 MILLIGRAM, BID
     Route: 048
     Dates: start: 20230604

REACTIONS (8)
  - Fatigue [Unknown]
  - Splenomegaly [Unknown]
  - Gastric disorder [Unknown]
  - Frustration tolerance decreased [Unknown]
  - Depressed mood [Unknown]
  - Asthenia [Unknown]
  - Pruritus [Unknown]
  - Muscle spasms [Unknown]
